FAERS Safety Report 8133893-5 (Version None)
Quarter: 2012Q1

REPORT INFORMATION
  Report Type: 
  Country: None (occurrence: None)
  Receive Date: 20120213
  Receipt Date: 20120201
  Transmission Date: 20120608
  Serious: Yes (Hospitalization, Other)
  Sender: FDA-Public Use
  Company Number: BR-ELI_LILLY_AND_COMPANY-BR200907005038

PATIENT
  Sex: Female
  Weight: 62 kg

DRUGS (17)
  1. FORTEO [Suspect]
     Indication: OSTEOPOROSIS
     Dosage: 20 UG, DAILY (1/D)
     Route: 058
  2. BUSONID [Concomitant]
     Dosage: UNK, BID
     Route: 065
  3. BEROTEC [Concomitant]
     Dosage: UNK, PRN
     Route: 065
  4. ALBUTEROL [Concomitant]
     Indication: ASTHMA
     Dosage: UNK, PRN
     Route: 055
  5. DIOSMIN W/HESPERIDIN [Concomitant]
     Dosage: UNK, QD
     Route: 065
  6. TRAMADOL HYDROCHLORIDE AND ACETAMINOPHEN [Concomitant]
     Indication: BONE PAIN
     Dosage: 325 MG, OTHER
     Route: 048
  7. ADALAT [Concomitant]
     Indication: HYPERTENSION
     Dosage: 25 MG, UNKNOWN
     Route: 065
  8. OLCADIL [Concomitant]
     Dosage: UNK, EACH EVENING
     Route: 065
  9. XOLAIR [Concomitant]
     Indication: ASTHMA
     Dosage: UNK, OTHER
     Route: 058
  10. SIMVASTATIN [Concomitant]
     Indication: BLOOD CHOLESTEROL
     Dosage: UNK, QD
     Route: 048
     Dates: start: 20100901
  11. PREDNISONE TAB [Concomitant]
     Indication: ASTHMA
     Dosage: 40 MG, UNKNOWN
     Route: 065
  12. DESALEX [Concomitant]
     Indication: ASTHMA
     Dosage: UNK, UNKNOWN
     Route: 065
  13. ACETAMINOPHEN W/ CODEINE [Concomitant]
     Indication: BACK PAIN
     Dosage: 30 MG, BID
     Route: 048
  14. CLONAZEPAM [Concomitant]
     Indication: ANXIETY
     Dosage: 2 MG, QD
     Route: 048
     Dates: start: 20090101
  15. BECLOSOL [Concomitant]
     Indication: SINUSITIS
     Dosage: UNK, QD
     Route: 045
  16. FORMOTEROL FUMARATE [Concomitant]
     Indication: ASTHMA
     Dosage: UNK, UNKNOWN
     Route: 065
  17. ALENDRONATE SODIUM [Concomitant]
     Indication: OSTEOPOROSIS
     Dosage: UNK, UNKNOWN
     Route: 065

REACTIONS (19)
  - DEVICE DISLOCATION [None]
  - SPINAL FRACTURE [None]
  - WEIGHT DECREASED [None]
  - CHEST PAIN [None]
  - KYPHOSIS [None]
  - BODY HEIGHT DECREASED [None]
  - PATHOLOGICAL FRACTURE [None]
  - COMPRESSION FRACTURE [None]
  - BACK PAIN [None]
  - DIZZINESS [None]
  - INCORRECT DRUG ADMINISTRATION DURATION [None]
  - INJECTION SITE REACTION [None]
  - DRUG DOSE OMISSION [None]
  - BLOOD CHOLESTEROL INCREASED [None]
  - DEVICE DAMAGE [None]
  - FRACTURE [None]
  - PAIN [None]
  - INJECTION SITE EXTRAVASATION [None]
  - WEIGHT INCREASED [None]
